FAERS Safety Report 9841460 (Version 1)
Quarter: 2014Q1

REPORT INFORMATION
  Report Type: Spontaneous
  Country: US (occurrence: US)
  Receive Date: 20140124
  Receipt Date: 20140124
  Transmission Date: 20141002
  Serious: Yes (Other)
  Sender: FDA-Public Use
  Company Number: US-ASTRAZENECA-2014SE03999

PATIENT
  Age: 49 Year
  Sex: Female
  Weight: 62.6 kg

DRUGS (4)
  1. METOPROLOL SUCCINATE [Suspect]
     Indication: ARRHYTHMIA
     Route: 048
     Dates: start: 20131013
  2. METOPROLOL SUCCINATE [Interacting]
     Indication: VENTRICULAR EXTRASYSTOLES
     Route: 048
     Dates: start: 20131013
  3. ALEVE [Interacting]
     Indication: DYSMENORRHOEA
     Dosage: ONCE
  4. CENTRUM SILVER FOR WOMEN PLUS 50 [Concomitant]
     Indication: VITAMIN SUPPLEMENTATION
     Dosage: 1 TO 3 TIMES A WEEK

REACTIONS (13)
  - Drug interaction [Recovered/Resolved]
  - Heart rate abnormal [Recovered/Resolved]
  - Ventricular extrasystoles [Unknown]
  - Dysmenorrhoea [Unknown]
  - Cardiac disorder [Unknown]
  - Frustration [Unknown]
  - Fatigue [Recovered/Resolved]
  - Sleep disorder [Unknown]
  - Fear [Unknown]
  - Off label use [Unknown]
  - Drug ineffective [Unknown]
  - Drug effect decreased [Recovered/Resolved]
  - Therapeutic response unexpected [Unknown]
